FAERS Safety Report 19145518 (Version 4)
Quarter: 2021Q3

REPORT INFORMATION
  Report Type: Report from Study
  Country: IT (occurrence: IT)
  Receive Date: 20210416
  Receipt Date: 20210716
  Transmission Date: 20211014
  Serious: Yes (Other)
  Sender: FDA-Public Use
  Company Number: IT-TEVA-2021-IT-1900973

PATIENT
  Age: 71 Year
  Sex: Female
  Weight: 90 kg

DRUGS (5)
  1. ENDOXAN BAXTER 50 MG COMPRESSE RIVESTITE [Suspect]
     Active Substance: CYCLOPHOSPHAMIDE
     Indication: BREAST CANCER STAGE IV
     Dosage: 50 MG
     Route: 048
     Dates: start: 20210122
  2. METOTRESSATO TEVA 25 MG/ML SOLUZIONE INIETTABILE [Suspect]
     Active Substance: METHOTREXATE SODIUM
     Indication: BREAST CANCER STAGE IV
     Dosage: 70 MG
     Route: 042
     Dates: start: 20210122
  3. LEVOBREN 12,5 MG/ML SOLUZIONE INIETTABILE [Concomitant]
     Indication: PREMEDICATION
     Dosage: 50 MG
     Route: 042
  4. FLUOROURACILE TEVA 5 G/100 ML SOLUZIONE PER INFUSIONE [Suspect]
     Active Substance: FLUOROURACIL
     Indication: BREAST CANCER STAGE IV
     Dosage: 1100 MG
     Route: 042
     Dates: start: 20210122
  5. SOLDESAM [Concomitant]
     Active Substance: DEXAMETHASONE
     Indication: PREMEDICATION
     Dosage: 4 MG
     Route: 042

REACTIONS (2)
  - Leukopenia [Not Recovered/Not Resolved]
  - Neutropenia [Not Recovered/Not Resolved]

NARRATIVE: CASE EVENT DATE: 20210319
